FAERS Safety Report 7370457-5 (Version None)
Quarter: 2011Q1

REPORT INFORMATION
  Report Type: 
  Country: None (occurrence: None)
  Receive Date: 20110323
  Receipt Date: 20110314
  Transmission Date: 20110831
  Serious: Yes (Other)
  Sender: FDA-Public Use
  Company Number: US-ASTRAZENECA-2011SE14380

PATIENT
  Sex: Male

DRUGS (3)
  1. EFFEXOR [Suspect]
     Route: 065
  2. SEROQUEL [Suspect]
     Route: 048
  3. BYSTOLIC [Suspect]
     Route: 065

REACTIONS (2)
  - SUICIDE ATTEMPT [None]
  - MULTIPLE DRUG OVERDOSE [None]
